FAERS Safety Report 12686434 (Version 2)
Quarter: 2016Q3

REPORT INFORMATION
  Report Type: Spontaneous
  Country: US (occurrence: US)
  Receive Date: 20160825
  Receipt Date: 20160912
  Transmission Date: 20161109
  Serious: No
  Sender: FDA-Public Use
  Company Number: US-JAZZ-2016-US-006968

PATIENT
  Sex: Female

DRUGS (26)
  1. BELSOMRA [Concomitant]
     Active Substance: SUVOREXANT
  2. CLARINEX [Concomitant]
     Active Substance: DESLORATADINE
  3. CYMBALTA [Concomitant]
     Active Substance: DULOXETINE HYDROCHLORIDE
  4. VITAMIN C [Concomitant]
     Active Substance: ASCORBIC ACID
  5. MAGNESIUM CITRATE. [Concomitant]
     Active Substance: MAGNESIUM CITRATE
  6. BELSOMRA [Concomitant]
     Active Substance: SUVOREXANT
  7. ATENOLOL. [Concomitant]
     Active Substance: ATENOLOL
  8. PROMETRIUM [Concomitant]
     Active Substance: PROGESTERONE
  9. LORAZEPAM. [Concomitant]
     Active Substance: LORAZEPAM
  10. XYREM [Suspect]
     Active Substance: SODIUM OXYBATE
     Dosage: DOSE ADJUSTMENTS
     Route: 048
  11. RESTORIL [Concomitant]
     Active Substance: TEMAZEPAM
  12. HYDROCODONE/ACETAMINOPHEN [Concomitant]
     Active Substance: ACETAMINOPHEN\HYDROCODONE
  13. SIMVASTATIN. [Concomitant]
     Active Substance: SIMVASTATIN
  14. VITAMIN D3 [Concomitant]
     Active Substance: CHOLECALCIFEROL
  15. WELLBUTRIN [Concomitant]
     Active Substance: BUPROPION HYDROCHLORIDE
  16. XYREM [Suspect]
     Active Substance: SODIUM OXYBATE
     Indication: INSOMNIA
     Dosage: 3.5 G, BID
     Route: 048
     Dates: start: 200604, end: 200707
  17. LOTEMAX [Concomitant]
     Active Substance: LOTEPREDNOL ETABONATE
  18. QUETIAPINE FUMARATE. [Concomitant]
     Active Substance: QUETIAPINE FUMARATE
  19. COENZYME Q10 [Concomitant]
     Active Substance: UBIDECARENONE
  20. FISH OIL [Concomitant]
     Active Substance: FISH OIL
  21. XYREM [Suspect]
     Active Substance: SODIUM OXYBATE
     Dosage: 4.5 G, FIRST DOSE
     Route: 048
  22. XYREM [Suspect]
     Active Substance: SODIUM OXYBATE
     Dosage: UNKNOWN DOSE, SECOND DOSE
     Route: 048
  23. XANAX [Concomitant]
     Active Substance: ALPRAZOLAM
  24. CLONAZEPAM. [Concomitant]
     Active Substance: CLONAZEPAM
  25. FOSAMAX [Concomitant]
     Active Substance: ALENDRONATE SODIUM
  26. LEVOTHYROXINE SODIUM. [Concomitant]
     Active Substance: LEVOTHYROXINE SODIUM

REACTIONS (1)
  - Intentional product misuse [Unknown]
